FAERS Safety Report 9580198 (Version 2)
Quarter: 2014Q1

REPORT INFORMATION
  Report Type: Spontaneous
  Country: US (occurrence: US)
  Receive Date: 20131002
  Receipt Date: 20140227
  Transmission Date: 20141002
  Serious: Yes (Hospitalization, Other)
  Sender: FDA-Public Use
  Company Number: US-009507513-1309USA012060

PATIENT
  Sex: Female
  Weight: 54.88 kg

DRUGS (2)
  1. NUVARING [Suspect]
     Indication: CONTRACEPTION
     Dosage: ONE RING X 3 WEEKS, REMOVE X 1 WEEK, REPEAT WITH NEW RING
     Route: 067
     Dates: start: 201108, end: 201110
  2. NUVARING [Suspect]
     Dosage: ONE RING X 3 WEEKS, REMOVE X 1 WEEK, REPEAT WITH NEW RING
     Route: 067
     Dates: start: 2011, end: 201108

REACTIONS (10)
  - Gastric varices [Unknown]
  - Mesenteric vein thrombosis [Unknown]
  - Portal vein thrombosis [Unknown]
  - Splenic vein thrombosis [Unknown]
  - Abdominal pain [Unknown]
  - Chest discomfort [Unknown]
  - Deep vein thrombosis [Unknown]
  - Bartholin^s cyst [Unknown]
  - Unintended pregnancy [Recovered/Resolved]
  - Abortion [Unknown]
